FAERS Safety Report 6801562-7 (Version None)
Quarter: 2010Q2

REPORT INFORMATION
  Report Type: 
  Country: None (occurrence: None)
  Receive Date: 20100629
  Receipt Date: 20100621
  Transmission Date: 20101027
  Serious: Yes (Other)
  Sender: FDA-Public Use
  Company Number: CA-ASTRAZENECA-2010SE29276

PATIENT
  Age: 25 Year
  Sex: Female

DRUGS (3)
  1. SEROQUEL XR [Suspect]
     Route: 048
  2. SEROQUEL XR [Suspect]
     Route: 048
  3. SEROQUEL XR [Suspect]
     Route: 048

REACTIONS (5)
  - DISORIENTATION [None]
  - DYSPNOEA [None]
  - HEADACHE [None]
  - IMPAIRED DRIVING ABILITY [None]
  - THINKING ABNORMAL [None]
